FAERS Safety Report 7036112-6 (Version None)
Quarter: 2010Q4

REPORT INFORMATION
  Report Type: 
  Country: None (occurrence: None)
  Receive Date: 20101008
  Receipt Date: 20091204
  Transmission Date: 20110411
  Serious: No
  Sender: FDA-Public Use
  Company Number: US-BRISTOL-MYERS SQUIBB COMPANY-14862601

PATIENT
  Age: 77 Year
  Sex: Female

DRUGS (1)
  1. AVAPRO [Suspect]
     Indication: HYPERTENSION
     Dosage: DURATION:ATLEAST 3 YEARS AGO,SEP2009,9B46779A:OCT2009

REACTIONS (5)
  - COLD SWEAT [None]
  - FALL [None]
  - FLUSHING [None]
  - MALAISE [None]
  - PALLOR [None]
